FAERS Safety Report 6693068-3 (Version None)
Quarter: 2010Q2

REPORT INFORMATION
  Report Type: 
  Country: None (occurrence: None)
  Receive Date: 20100422
  Receipt Date: 20100409
  Transmission Date: 20101027
  Serious: Yes (Hospitalization)
  Sender: FDA-Public Use
  Company Number: DE-MYLANLABS-2009S1015144

PATIENT
  Age: 41 Year
  Sex: Female
  Weight: 77 kg

DRUGS (5)
  1. CLARITHROMYCIN [Suspect]
     Indication: SINUSITIS
     Route: 048
     Dates: start: 20090603, end: 20090612
  2. CLINDAMYCIN [Suspect]
     Indication: SINUSITIS
     Route: 048
     Dates: start: 20090626, end: 20090706
  3. CEFUROXIME [Concomitant]
     Indication: DRUG USE FOR UNKNOWN INDICATION
     Route: 048
     Dates: start: 20090501
  4. LEVOTHYROXINE SODIUM [Concomitant]
     Indication: AUTOIMMUNE THYROIDITIS
     Route: 048
  5. SINGULAIR [Concomitant]
     Indication: ASTHMA
     Route: 048

REACTIONS (1)
  - ENTERITIS INFECTIOUS [None]
